FAERS Safety Report 7393788-1 (Version None)
Quarter: 2011Q2

REPORT INFORMATION
  Report Type: 
  Country: None (occurrence: None)
  Receive Date: 20110405
  Receipt Date: 20110324
  Transmission Date: 20111010
  Serious: Yes (Hospitalization, Other)
  Sender: FDA-Public Use
  Company Number: US-ELI_LILLY_AND_COMPANY-US201103008080

PATIENT
  Sex: Female

DRUGS (3)
  1. LITHIUM [Concomitant]
  2. CYMBALTA [Suspect]
     Dosage: UNK, UNKNOWN
     Dates: start: 20080101
  3. CYMBALTA [Suspect]
     Dosage: 60 MG, UNK
     Dates: start: 20100101

REACTIONS (3)
  - HEPATIC STEATOSIS [None]
  - ABDOMINAL PAIN [None]
  - HEPATIC ENZYME INCREASED [None]
